FAERS Safety Report 4832896-3 (Version None)
Quarter: 2005Q4

REPORT INFORMATION
  Report Type: 
  Country: None (occurrence: None)
  Receive Date: 20051121
  Receipt Date: 20051116
  Transmission Date: 20060501
  Serious: Yes (Death, Hospitalization)
  Sender: FDA-Public Use
  Company Number: DZ-GLAXOSMITHKLINE-B0400933A

PATIENT
  Age: 43 Year
  Sex: Male

DRUGS (1)
  1. AUGMENTIN [Suspect]
     Indication: TOOTH ABSCESS

REACTIONS (1)
  - DEATH [None]
